FAERS Safety Report 5690623-4 (Version None)
Quarter: 2008Q1

REPORT INFORMATION
  Report Type: 
  Country: None (occurrence: None)
  Receive Date: 20080331
  Receipt Date: 20080331
  Transmission Date: 20080703
  Serious: Yes (Other)
  Sender: FDA-Public Use
  Company Number: None

PATIENT
  Sex: Male
  Weight: 92.9874 kg

DRUGS (2)
  1. SYMBICORT [Suspect]
     Indication: COUGH
     Dosage: 2 PUFFS ONCE A DAY INHAL
     Route: 055
     Dates: start: 20080115, end: 20080130
  2. SINGULAIR [Suspect]
     Indication: MULTIPLE ALLERGIES
     Dosage: 1 TABLET DAILY PO
     Route: 048
     Dates: start: 20060801, end: 20080328

REACTIONS (2)
  - COUGH [None]
  - DEPRESSION [None]
